FAERS Safety Report 9762576 (Version 1)
Quarter: 2013Q4

REPORT INFORMATION
  Report Type: Spontaneous
  Country: US (occurrence: US)
  Receive Date: 20131216
  Receipt Date: 20131216
  Transmission Date: 20140711
  Serious: No
  Sender: FDA-Public Use
  Company Number: US-BIOGENIDEC-2013BI108435

PATIENT
  Age: 72 Year
  Sex: Male

DRUGS (14)
  1. TECFIDERA [Suspect]
     Indication: MULTIPLE SCLEROSIS
     Route: 048
     Dates: start: 20130913
  2. BACLOFEN [Concomitant]
  3. ASPIRIN [Concomitant]
  4. GLIMEPIRIDE [Concomitant]
  5. GLUCOPHAGE [Concomitant]
  6. MECLIZINE [Concomitant]
  7. NIASPAN [Concomitant]
  8. NITROFURANTOIN [Concomitant]
  9. PROMETHAZINE [Concomitant]
  10. LISINOPRIL [Concomitant]
  11. SIMVISTATIN [Concomitant]
  12. TERAZOSIN [Concomitant]
  13. TRIAMCINOLONE [Concomitant]
  14. VIAGRA [Concomitant]

REACTIONS (2)
  - Dysuria [Unknown]
  - Constipation [Unknown]
